FAERS Safety Report 4423918-2 (Version None)
Quarter: 2004Q3

REPORT INFORMATION
  Report Type: 
  Country: None (occurrence: None)
  Receive Date: 20040806
  Receipt Date: 20040727
  Transmission Date: 20050211
  Serious: Yes (Other)
  Sender: FDA-Public Use
  Company Number: K200400827

PATIENT
  Age: 69 Year
  Sex: Female

DRUGS (3)
  1. ALTACE [Suspect]
     Indication: HYPERTENSION
     Dosage: ORAL
     Route: 048
     Dates: start: 19990101
  2. HYDROCHLOROTHIAZIDE [Suspect]
     Indication: HYPERTENSION
     Dosage: ORAL
     Route: 048
     Dates: start: 19940101, end: 20040401
  3. PRAVASTATIN SODIUM [Suspect]
     Indication: HYPERCHOLESTEROLAEMIA
     Dosage: 1, ORAL
     Route: 048

REACTIONS (2)
  - CUTANEOUS LUPUS ERYTHEMATOSUS [None]
  - PSEUDO LYMPHOMA [None]
